FAERS Safety Report 9302203 (Version 2)
Quarter: 2013Q4

REPORT INFORMATION
  Report Type: Spontaneous
  Country: US (occurrence: US)
  Receive Date: 20130522
  Receipt Date: 20131108
  Transmission Date: 20140711
  Serious: Yes (Hospitalization, Other)
  Sender: FDA-Public Use
  Company Number: US-B.I. PHARMACEUTICALS,INC./RIDGEFIELD-2013-BI-14118BP

PATIENT
  Sex: Male
  Weight: 99.79 kg

DRUGS (13)
  1. PRADAXA [Suspect]
     Indication: ANTICOAGULANT THERAPY
     Dates: start: 20110114, end: 20111111
  2. PRADAXA [Suspect]
     Indication: ATRIAL FIBRILLATION
  3. ASPIRIN [Suspect]
     Indication: ATRIAL FIBRILLATION
     Dates: end: 20111111
  4. VALPROIC ACID [Concomitant]
  5. LEXAPRO [Concomitant]
  6. LOSARTAN [Concomitant]
  7. SIMVASTATIN [Concomitant]
  8. TRIGLIDE [Concomitant]
  9. METOPROLOL [Concomitant]
  10. PRIMIDONE [Concomitant]
  11. METFORMIN [Concomitant]
  12. GALANTAMINE [Concomitant]
  13. PIOGLITAZONE [Concomitant]

REACTIONS (2)
  - Haematuria [Unknown]
  - Anaemia [Unknown]
